FAERS Safety Report 5183431-4 (Version None)
Quarter: 2006Q4

REPORT INFORMATION
  Report Type: 
  Country: None (occurrence: None)
  Receive Date: 20061220
  Receipt Date: 20060112
  Transmission Date: 20070319
  Serious: No
  Sender: FDA-Public Use
  Company Number: US-GLAXOSMITHKLINE-A0588956A

PATIENT
  Age: 80 Year
  Sex: Female

DRUGS (2)
  1. NICODERM CQ [Suspect]
     Route: 062
     Dates: start: 20060109, end: 20060111
  2. BLOOD PRESSURE MEDICATION [Concomitant]

REACTIONS (3)
  - HEADACHE [None]
  - HYPERTENSION [None]
  - VISION BLURRED [None]
